FAERS Safety Report 10260343 (Version 1)
Quarter: 2014Q2

REPORT INFORMATION
  Report Type: Spontaneous
  Country: US (occurrence: US)
  Receive Date: 20140625
  Receipt Date: 20140625
  Transmission Date: 20141212
  Serious: No
  Sender: FDA-Public Use
  Company Number: US-SA-2014SA075149

PATIENT
  Sex: Male
  Weight: 73.4 kg

DRUGS (10)
  1. AUBAGIO [Suspect]
     Indication: MULTIPLE SCLEROSIS
     Route: 048
     Dates: start: 201312
  2. BENAZEPRIL [Concomitant]
  3. FUROSEMIDE [Concomitant]
  4. PRAVASTATIN [Concomitant]
  5. BACLOFEN [Concomitant]
  6. BESIVANCE [Concomitant]
  7. PREDNISOLONE [Concomitant]
  8. BROMFENAC [Concomitant]
  9. VIAGRA [Concomitant]
  10. VITAMIN D [Concomitant]

REACTIONS (1)
  - Diarrhoea [Recovering/Resolving]
